FAERS Safety Report 5871627-5 (Version None)
Quarter: 2008Q3

REPORT INFORMATION
  Report Type: 
  Country: None (occurrence: None)
  Receive Date: 20080904
  Receipt Date: 20080904
  Transmission Date: 20090109
  Serious: Yes (Hospitalization)
  Sender: FDA-Public Use
  Company Number: None

PATIENT
  Age: 50 Year
  Sex: Female
  Weight: 129.2752 kg

DRUGS (1)
  1. CIPRO [Suspect]
     Indication: CYSTITIS

REACTIONS (2)
  - DRUG HYPERSENSITIVITY [None]
  - DRUG INEFFECTIVE [None]
